FAERS Safety Report 9612026 (Version 1)
Quarter: 2013Q4

REPORT INFORMATION
  Report Type: Spontaneous
  Country: PL (occurrence: PL)
  Receive Date: 20131010
  Receipt Date: 20131010
  Transmission Date: 20140711
  Serious: Yes (Hospitalization)
  Sender: FDA-Public Use
  Company Number: PL-ABBVIE-13P-129-1155897-00

PATIENT
  Age: 3 Year
  Sex: Female

DRUGS (27)
  1. SODIUM VALPROATE [Suspect]
     Indication: EPILEPSY
  2. CLARITHROMYCIN [Suspect]
     Indication: PYREXIA
  3. CLARITHROMYCIN [Suspect]
     Indication: DYSPNOEA
  4. CLARITHROMYCIN [Suspect]
     Indication: ASTHENIA
  5. LEVELANZ [Suspect]
     Indication: EPILEPSY
  6. GANCICLOVIR [Suspect]
     Indication: EPILEPSY
  7. VIGABATRIN [Suspect]
     Indication: EPILEPSY
  8. LAMOTRIGINE [Suspect]
     Indication: EPILEPSY
  9. KETOGENIC [Suspect]
     Indication: EPILEPSY
  10. CEFTRIAXONE [Suspect]
     Indication: PYREXIA
  11. CEFTRIAXONE [Suspect]
     Indication: DYSPNOEA
  12. CEFTRIAXONE [Suspect]
     Indication: ASTHENIA
  13. CLINDAMYCIN [Suspect]
     Indication: PYREXIA
  14. CLINDAMYCIN [Suspect]
     Indication: DYSPNOEA
  15. CLINDAMYCIN [Suspect]
     Indication: ASTHENIA
  16. CIPROFLOXACIN [Suspect]
     Indication: PYREXIA
  17. CIPROFLOXACIN [Suspect]
     Indication: DYSPNOEA
  18. CIPROFLOXACIN [Suspect]
     Indication: ASTHENIA
  19. MEROPENEM [Suspect]
     Indication: PYREXIA
  20. MEROPENEM [Suspect]
     Indication: DYSPNOEA
  21. MEROPENEM [Suspect]
     Indication: ASTHENIA
  22. VANCOMYCIN [Suspect]
     Indication: PYREXIA
  23. VANCOMYCIN [Suspect]
     Indication: DYSPNOEA
  24. VANCOMYCIN [Suspect]
     Indication: ASTHENIA
  25. FLUCONAZOLE [Suspect]
     Indication: PYREXIA
  26. FLUCONAZOLE [Suspect]
     Indication: DYSPNOEA
  27. FLUCONAZOLE [Suspect]
     Indication: ASTHENIA

REACTIONS (2)
  - Pneumonia lipoid [Recovering/Resolving]
  - Drug ineffective [Recovered/Resolved]
